FAERS Safety Report 4719887-8 (Version None)
Quarter: 2005Q3

REPORT INFORMATION
  Report Type: 
  Country: None (occurrence: None)
  Receive Date: 20050721
  Receipt Date: 20050103
  Transmission Date: 20060218
  Serious: No
  Sender: FDA-Public Use
  Company Number: US-GLAXOSMITHKLINE-A0539104A

PATIENT
  Age: 57 Year
  Sex: Female
  Weight: 78.6 kg

DRUGS (7)
  1. AVANDIA [Suspect]
     Dosage: 4MG PER DAY
     Route: 048
     Dates: start: 20041101
  2. PREMARIN [Concomitant]
  3. ZOCOR [Concomitant]
  4. ATENOLOL [Concomitant]
  5. GERITOL [Concomitant]
  6. IBUPROFEN [Concomitant]
  7. ASPIRIN [Concomitant]

REACTIONS (1)
  - ALOPECIA [None]
